FAERS Safety Report 8332909-0 (Version None)
Quarter: 2012Q2

REPORT INFORMATION
  Report Type: 
  Country: None (occurrence: None)
  Receive Date: 20120503
  Receipt Date: 20120425
  Transmission Date: 20120825
  Serious: Yes (Hospitalization)
  Sender: FDA-Public Use
  Company Number: FR-ABBOTT-12P-056-0929143-00

PATIENT
  Sex: Female

DRUGS (3)
  1. HUMIRA [Suspect]
     Indication: ANKYLOSING SPONDYLITIS
     Route: 058
     Dates: start: 20110202, end: 20110902
  2. REMICADE [Suspect]
     Indication: ANKYLOSING SPONDYLITIS
     Dosage: 250 MG/COURSE
     Route: 042
     Dates: start: 20100127, end: 20110131
  3. REMICADE [Suspect]
     Dosage: 300 MG/COURSE
     Route: 042
     Dates: start: 20111010

REACTIONS (1)
  - CERVIX NEOPLASM [None]
